FAERS Safety Report 7622347-8 (Version None)
Quarter: 2011Q3

REPORT INFORMATION
  Report Type: 
  Country: None (occurrence: None)
  Receive Date: 20110711
  Receipt Date: 20110628
  Transmission Date: 20111222
  Serious: Yes (Hospitalization)
  Sender: FDA-Public Use
  Company Number: DSA_47056_2011

PATIENT
  Sex: Female
  Weight: 51.6 kg

DRUGS (7)
  1. TETRABENAZINE (TETRABENAZINE) 12.5 MG [Suspect]
     Indication: HUNTINGTON'S DISEASE
     Dosage: SEE IMAGE
     Route: 048
     Dates: start: 20110531, end: 20110606
  2. TETRABENAZINE (TETRABENAZINE) 12.5 MG [Suspect]
     Indication: HUNTINGTON'S DISEASE
     Dosage: SEE IMAGE
     Route: 048
     Dates: start: 20110615, end: 20110621
  3. TETRABENAZINE (TETRABENAZINE) 12.5 MG [Suspect]
     Indication: HUNTINGTON'S DISEASE
     Dosage: SEE IMAGE
     Route: 048
     Dates: start: 20110622, end: 20110625
  4. TETRABENAZINE (TETRABENAZINE) 12.5 MG [Suspect]
     Indication: HUNTINGTON'S DISEASE
     Dosage: SEE IMAGE
     Route: 048
     Dates: start: 20110525, end: 20110530
  5. TETRABENAZINE (TETRABENAZINE) 12.5 MG [Suspect]
     Indication: HUNTINGTON'S DISEASE
     Dosage: SEE IMAGE
     Route: 048
     Dates: start: 20100607, end: 20100614
  6. SENNA ALEXANDRINA EXTRACT [Concomitant]
  7. NEUROTROPIN /06251301/ [Concomitant]

REACTIONS (6)
  - LACERATION [None]
  - NO THERAPEUTIC RESPONSE [None]
  - INTENTIONAL SELF-INJURY [None]
  - PAIN [None]
  - INSOMNIA [None]
  - SUICIDE ATTEMPT [None]
